FAERS Safety Report 18689738 (Version 1)
Quarter: 2020Q4

REPORT INFORMATION
  Report Type: Spontaneous
  Country: DE (occurrence: DE)
  Receive Date: 20201231
  Receipt Date: 20201231
  Transmission Date: 20210114
  Serious: Yes (Other)
  Sender: FDA-Public Use
  Company Number: DE-ALLERGAN-2049859US

PATIENT
  Sex: Female
  Weight: 2.49 kg

DRUGS (5)
  1. CETIRIZINE [Concomitant]
     Active Substance: CETIRIZINE HYDROCHLORIDE
     Indication: SEASONAL ALLERGY
     Dosage: UNK, PRN
     Route: 064
     Dates: start: 20190414, end: 20190619
  2. FOLSAURE [Concomitant]
     Active Substance: FOLIC ACID
     Indication: PROPHYLAXIS OF NEURAL TUBE DEFECT
     Route: 064
     Dates: start: 20190529, end: 20190619
  3. MIRTAZAPIN [Suspect]
     Active Substance: MIRTAZAPINE
     Indication: SLEEP DISORDER
     Dosage: 30 MG, QD
     Route: 064
     Dates: start: 20190414, end: 20200108
  4. ESCITALOPRAM OXALATE - BP [Suspect]
     Active Substance: ESCITALOPRAM OXALATE
     Indication: EXPOSURE DURING PREGNANCY
     Dosage: 20 MG, QD
     Route: 064
     Dates: start: 20190414, end: 20200108
  5. SUBSTITOL RET.[MORPHINE] [Suspect]
     Active Substance: MORPHINE
     Indication: DRUG DEPENDENCE
     Dosage: 400 MG, QD
     Route: 064
     Dates: start: 20190414, end: 20200108

REACTIONS (4)
  - Drug withdrawal syndrome neonatal [Recovered/Resolved]
  - Pregnancy [Unknown]
  - Small for dates baby [Recovered/Resolved]
  - Respiratory disorder neonatal [Recovered/Resolved]

NARRATIVE: CASE EVENT DATE: 20200108
